FAERS Safety Report 8959008 (Version 1)
Quarter: 2012Q4

REPORT INFORMATION
  Report Type: 
  Country: FR (occurrence: FR)
  Receive Date: 20121212
  Receipt Date: 20121212
  Transmission Date: 20130627
  Serious: Yes (Death, Life-Threatening, Hospitalization)
  Sender: FDA-Public Use
  Company Number: FR-ROCHE-1162094

PATIENT
  Age: 71 Year
  Sex: Male

DRUGS (5)
  1. CYCLOPHOSPHAMIDE [Suspect]
     Indication: B-CELL LYMPHOMA
     Route: 042
     Dates: start: 200910, end: 201001
  2. DOXORUBICIN HYDROCHLORIDE [Suspect]
     Indication: B-CELL LYMPHOMA
     Route: 042
     Dates: start: 200910, end: 201001
  3. VINCRISTINE SULFATE [Suspect]
     Indication: B-CELL LYMPHOMA
     Route: 042
     Dates: start: 200910, end: 201001
  4. RITUXIMAB [Suspect]
     Indication: B-CELL LYMPHOMA
     Route: 042
     Dates: start: 200910, end: 201001
  5. PREDNISONE [Suspect]
     Indication: B-CELL LYMPHOMA
     Route: 042
     Dates: start: 200910, end: 201001

REACTIONS (1)
  - Metastatic malignant melanoma [Fatal]
